FAERS Safety Report 12732435 (Version 1)
Quarter: 2016Q3

REPORT INFORMATION
  Report Type: Spontaneous
  Country: US (occurrence: US)
  Receive Date: 20160910
  Receipt Date: 20160910
  Transmission Date: 20161109
  Serious: Yes (Other)
  Sender: FDA-Public Use
  Company Number: None

PATIENT
  Age: 36 Year
  Sex: Female
  Weight: 54.6 kg

DRUGS (1)
  1. VERMOX [Suspect]
     Active Substance: MEBENDAZOLE
     Indication: PRODUCT USED FOR UNKNOWN INDICATION
     Dates: start: 20160613, end: 20160627

REACTIONS (1)
  - Alopecia [None]

NARRATIVE: CASE EVENT DATE: 20160614
